FAERS Safety Report 22255135 (Version 1)
Quarter: 2023Q2

REPORT INFORMATION
  Report Type: Spontaneous
  Country: US (occurrence: None)
  Receive Date: 20230424
  Receipt Date: 20230424
  Transmission Date: 20230722
  Serious: Yes (Hospitalization, Disabling)
  Sender: FDA-Public Use
  Company Number: None

PATIENT
  Age: 71 Year
  Sex: Male

DRUGS (2)
  1. SUNITINIB [Suspect]
     Active Substance: SUNITINIB
     Indication: Soft tissue sarcoma
     Dosage: 1 CAP QD PO
     Route: 048
     Dates: start: 20211108, end: 20230324
  2. SUNITINIB [Suspect]
     Active Substance: SUNITINIB
     Indication: Metastases to lung

REACTIONS (1)
  - Renal failure [None]

NARRATIVE: CASE EVENT DATE: 20230414
